FAERS Safety Report 8581853-2 (Version None)
Quarter: 2012Q3

REPORT INFORMATION
  Report Type: 
  Country: None (occurrence: None)
  Receive Date: 20120809
  Receipt Date: 20120730
  Transmission Date: 20120928
  Serious: Yes (Other)
  Sender: FDA-Public Use
  Company Number: US-PFIZER INC-2012190632

PATIENT
  Age: 62 Year
  Sex: Male

DRUGS (2)
  1. VIAGRA [Suspect]
     Indication: ERECTILE DYSFUNCTION
     Dosage: 50-100 MG PILL, UNK
     Route: 048
  2. BENADRYL [Concomitant]
     Dosage: UNK

REACTIONS (4)
  - HEADACHE [None]
  - ABNORMAL SENSATION IN EYE [None]
  - NAUSEA [None]
  - OCULAR HYPERAEMIA [None]
